FAERS Safety Report 6376594-6 (Version None)
Quarter: 2009Q3

REPORT INFORMATION
  Report Type: 
  Country: None (occurrence: None)
  Receive Date: 20090925
  Receipt Date: 20090916
  Transmission Date: 20100115
  Serious: Yes (Hospitalization)
  Sender: FDA-Public Use
  Company Number: PHBS2005JP13377

PATIENT
  Sex: Male
  Weight: 65 kg

DRUGS (3)
  1. GLEEVEC [Suspect]
     Indication: CHRONIC MYELOID LEUKAEMIA
     Dosage: 400 MG/D
     Route: 048
     Dates: start: 20050711, end: 20050901
  2. ALOSITOL [Suspect]
     Dosage: 500 MG/D
     Route: 048
     Dates: start: 20050702, end: 20050901
  3. GASTER D [Concomitant]
     Dosage: 20 MG/D
     Route: 048
     Dates: start: 20050702, end: 20050901

REACTIONS (9)
  - CYTOMEGALOVIRUS COLITIS [None]
  - DIARRHOEA [None]
  - DYSPNOEA [None]
  - HYPOXIA [None]
  - INTERSTITIAL LUNG DISEASE [None]
  - PCO2 DECREASED [None]
  - PO2 DECREASED [None]
  - PYREXIA [None]
  - RESPIRATORY FAILURE [None]
